FAERS Safety Report 5074982-1 (Version None)
Quarter: 2006Q3

REPORT INFORMATION
  Report Type: 
  Country: None (occurrence: None)
  Receive Date: 20060809
  Receipt Date: 20060729
  Transmission Date: 20061208
  Serious: Yes (Other)
  Sender: FDA-Public Use
  Company Number: PHHO2006MX12429

PATIENT
  Age: 53 Year
  Sex: Female

DRUGS (1)
  1. ZELMAC / HTF 919A [Suspect]
     Indication: IRRITABLE BOWEL SYNDROME
     Dosage: 6MG
     Route: 048
     Dates: start: 20060601, end: 20060721

REACTIONS (5)
  - BACK PAIN [None]
  - BLADDER SPASM [None]
  - DYSURIA [None]
  - KIDNEY INFECTION [None]
  - POLYURIA [None]
